FAERS Safety Report 5527699-0 (Version None)
Quarter: 2007Q4

REPORT INFORMATION
  Report Type: 
  Country: None (occurrence: None)
  Receive Date: 20071128
  Receipt Date: 20071120
  Transmission Date: 20080405
  Serious: Yes (Death, Hospitalization)
  Sender: FDA-Public Use
  Company Number: ES-ABBOTT-07P-144-0424694-00

PATIENT
  Age: 44 Year
  Sex: Male

DRUGS (2)
  1. KALETRA [Suspect]
     Indication: HIV INFECTION CDC GROUP III
     Route: 048
     Dates: start: 20070822, end: 20070923
  2. TRIZIVIR [Suspect]
     Indication: HIV INFECTION CDC GROUP III
     Route: 048
     Dates: start: 20070822, end: 20070923

REACTIONS (2)
  - CEREBRAL HAEMORRHAGE [None]
  - COAGULOPATHY [None]
